FAERS Safety Report 14610740 (Version 2)
Quarter: 2019Q1

REPORT INFORMATION
  Report Type: Report from Study
  Country: FR (occurrence: FR)
  Receive Date: 20180308
  Receipt Date: 20190326
  Transmission Date: 20190417
  Serious: Yes (Hospitalization)
  Sender: FDA-Public Use
  Company Number: FR-ROCHE-2079727

PATIENT
  Age: 61 Year
  Sex: Male
  Weight: 92 kg

DRUGS (16)
  1. LANTUS [Concomitant]
     Active Substance: INSULIN GLARGINE
     Indication: DIABETES MELLITUS
     Route: 065
     Dates: start: 2009
  2. VEMURAFENIB. [Suspect]
     Active Substance: VEMURAFENIB
     Indication: MALIGNANT MELANOMA
     Dosage: MOST RECENT DOSE (TOTAL NUMBER OF TABLETS 4) ON 22/FEB/2018?DOSE BLINDED
     Route: 048
     Dates: start: 20171207
  3. TRAMADOL LP [Concomitant]
     Active Substance: TRAMADOL HYDROCHLORIDE
     Indication: PAIN
     Route: 065
     Dates: start: 20171109
  4. XYLOCAINE [Concomitant]
     Active Substance: LIDOCAINE HYDROCHLORIDE
     Indication: APHTHOUS ULCER
     Route: 065
     Dates: start: 20180104
  5. TRAMADOL. [Concomitant]
     Active Substance: TRAMADOL
     Indication: PAIN
     Route: 065
     Dates: start: 20171109
  6. COBIMETINIB. [Suspect]
     Active Substance: COBIMETINIB
     Indication: MALIGNANT MELANOMA
     Dosage: MOST RECENT DOSE 60 MG ON 22/FEB/2018 AND 21/FEB/2018
     Route: 048
     Dates: start: 20171207
  7. NOVORAPID [Concomitant]
     Active Substance: INSULIN ASPART
     Indication: DIABETES MELLITUS
     Route: 065
     Dates: start: 2009
  8. METFORMIN [Concomitant]
     Active Substance: METFORMIN HYDROCHLORIDE
     Indication: DIABETES MELLITUS
     Route: 065
     Dates: start: 2009
  9. APROVEL [Concomitant]
     Active Substance: IRBESARTAN
     Indication: HYPERTENSION
     Route: 065
     Dates: start: 2014
  10. SPASFON LYOC [Concomitant]
     Active Substance: PHLOROGLUCINOL
     Indication: PAIN
     Route: 065
     Dates: start: 20170926
  11. FORLAX [Concomitant]
     Active Substance: POLYETHYLENE GLYCOL 4000
     Indication: FUNCTIONAL GASTROINTESTINAL DISORDER
     Route: 065
     Dates: start: 20170926
  12. PAROEX [Concomitant]
     Active Substance: CHLORHEXIDINE GLUCONATE
     Indication: APHTHOUS ULCER
     Route: 065
     Dates: start: 20180104
  13. ZELITREX [Concomitant]
     Active Substance: VALACYCLOVIR HYDROCHLORIDE
     Dosage: HERPES SIMPLEX TYPE 1 VIRUS INFECTION
     Route: 048
     Dates: start: 20180201, end: 20180213
  14. PLACEBO [Suspect]
     Active Substance: UNSPECIFIED INGREDIENT
     Indication: MALIGNANT MELANOMA
     Dosage: DATE OF MOST RECENT DOSE OF PLACEBO PRIOR TO AE ONSET 15 FEB 2018
     Route: 042
     Dates: start: 20180104
  15. ECONAZOLE. [Concomitant]
     Active Substance: ECONAZOLE NITRATE
     Indication: INTERTRIGO
     Route: 065
     Dates: start: 20171109
  16. DIFFU K [Concomitant]
     Active Substance: POTASSIUM CHLORIDE
     Indication: HYPOKALAEMIA
     Route: 065
     Dates: start: 20180104

REACTIONS (1)
  - Lipase increased [Recovered/Resolved]

NARRATIVE: CASE EVENT DATE: 20180222
